FAERS Safety Report 7655408-8 (Version None)
Quarter: 2011Q3

REPORT INFORMATION
  Report Type: 
  Country: None (occurrence: None)
  Receive Date: 20110729
  Receipt Date: 20110716
  Transmission Date: 20111222
  Serious: Yes (Hospitalization)
  Sender: FDA-Public Use
  Company Number: 2011AP001533

PATIENT
  Age: 50 Year
  Sex: Male

DRUGS (1)
  1. KETOCONAZOLE [Suspect]
     Indication: HYPERCORTICOIDISM
     Dosage: 200 MG

REACTIONS (4)
  - HYPOGLYCAEMIA [None]
  - ADRENOCORTICAL INSUFFICIENCY ACUTE [None]
  - HYPERKALAEMIA [None]
  - HYPOTENSION [None]
